FAERS Safety Report 17107242 (Version 1)
Quarter: 2019Q4

REPORT INFORMATION
  Report Type: Spontaneous
  Country: IT (occurrence: SE)
  Receive Date: 20191203
  Receipt Date: 20191203
  Transmission Date: 20200122
  Serious: Yes (Other)
  Sender: FDA-Public Use
  Company Number: IT-SUNOVION-2019SUN005293

PATIENT

DRUGS (4)
  1. LATUDA [Suspect]
     Active Substance: LURASIDONE HYDROCHLORIDE
     Indication: HALLUCINATION
     Route: 048
     Dates: start: 20190911, end: 20191010
  2. PROPAVAN [Concomitant]
     Active Substance: PROPIOMAZINE
     Dates: start: 20190426
  3. FLUOXETINE [Concomitant]
     Active Substance: FLUOXETINE HYDROCHLORIDE
     Dates: start: 20180611
  4. THERALEN [Concomitant]
     Active Substance: TRIMEPRAZINE
     Dates: start: 20180618

REACTIONS (2)
  - Depression [Recovered/Resolved]
  - Off label use [Unknown]

NARRATIVE: CASE EVENT DATE: 20190914
